FAERS Safety Report 17139012 (Version 2)
Quarter: 2019Q4

REPORT INFORMATION
  Report Type: Report from Study
  Country: JP (occurrence: JP)
  Receive Date: 20191211
  Receipt Date: 20191220
  Transmission Date: 20200122
  Serious: Yes (Death, Other)
  Sender: FDA-Public Use
  Company Number: JP-ADIENNEP-2019AD000588

PATIENT
  Age: 72 Day
  Sex: Male

DRUGS (2)
  1. MELPHALAN. [Suspect]
     Active Substance: MELPHALAN
     Indication: CHEMOTHERAPY
  2. THIOTEPA. [Suspect]
     Active Substance: THIOTEPA
     Indication: CHEMOTHERAPY

REACTIONS (4)
  - Pleural effusion [Unknown]
  - Mucosal inflammation [Unknown]
  - Pneumonia [Unknown]
  - Respiratory failure [Fatal]
